FAERS Safety Report 15313415 (Version 2)
Quarter: 2018Q3

REPORT INFORMATION
  Report Type: Spontaneous
  Country: DE (occurrence: DE)
  Receive Date: 20180823
  Receipt Date: 20180912
  Transmission Date: 20181010
  Serious: Yes (Death, Hospitalization)
  Sender: FDA-Public Use
  Company Number: DE-ROCHE-2174545

PATIENT
  Age: 60 Year
  Sex: Female
  Weight: 50 kg

DRUGS (7)
  1. PANTOPRAZOL [Concomitant]
     Active Substance: PANTOPRAZOLE SODIUM
     Indication: PROPHYLAXIS
     Route: 065
  2. NOVAMINSULFON [Concomitant]
     Active Substance: METAMIZOLE
     Indication: PAIN
     Route: 065
  3. CITALOPRAM [Concomitant]
     Active Substance: CITALOPRAM HYDROBROMIDE
     Indication: DEPRESSION
     Route: 065
  4. ZOMETA [Concomitant]
     Active Substance: ZOLEDRONIC ACID
     Indication: METASTASES TO BONE
     Route: 042
  5. MORPHIN [Concomitant]
     Active Substance: MORPHINE
     Indication: PAIN
     Route: 065
  6. HERCEPTIN [Suspect]
     Active Substance: TRASTUZUMAB
     Indication: BREAST CANCER
     Route: 042
  7. TAXOL [Suspect]
     Active Substance: PACLITAXEL
     Indication: BREAST CANCER
     Route: 042

REACTIONS (1)
  - Hepatitis toxic [Fatal]

NARRATIVE: CASE EVENT DATE: 20160811
